FAERS Safety Report 7090273-1 (Version None)
Quarter: 2010Q4

REPORT INFORMATION
  Report Type: 
  Country: None (occurrence: None)
  Receive Date: 20101109
  Receipt Date: 20101101
  Transmission Date: 20110411
  Serious: Yes (Other)
  Sender: FDA-Public Use
  Company Number: US-AMGEN-USASP2010003266

PATIENT

DRUGS (3)
  1. PROCRIT [Suspect]
     Dosage: 40000 IU, UNK
     Dates: start: 20100301, end: 20100901
  2. PROCRIT [Suspect]
     Dosage: 20000 IU, UNK
  3. PROCRIT [Suspect]
     Dosage: 10000 IU, UNK

REACTIONS (4)
  - ATRIAL FIBRILLATION [None]
  - CARDIAC FAILURE [None]
  - CONSTIPATION [None]
  - MALAISE [None]
